FAERS Safety Report 4606109-1 (Version None)
Quarter: 2005Q2

REPORT INFORMATION
  Report Type: 
  Country: None (occurrence: None)
  Receive Date: 20050303
  Receipt Date: 20050131
  Transmission Date: 20051028
  Serious: Yes (Other)
  Sender: FDA-Public Use
  Company Number: 200510148BWH

PATIENT
  Sex: Male

DRUGS (4)
  1. LEVITRA [Suspect]
     Indication: ERECTILE DYSFUNCTION
  2. COREG [Concomitant]
  3. COZAAR [Concomitant]
  4. DIAZIDE [Concomitant]

REACTIONS (1)
  - THROAT TIGHTNESS [None]
